FAERS Safety Report 10583943 (Version 1)
Quarter: 2014Q4

REPORT INFORMATION
  Report Type: Spontaneous
  Country: US (occurrence: None)
  Receive Date: 20141113
  Receipt Date: 20141113
  Transmission Date: 20150529
  Serious: Yes (Disabling, Other)
  Sender: FDA-Public Use
  Company Number: None

PATIENT
  Age: 61 Year

DRUGS (1)
  1. TOPIRAMATE. [Suspect]
     Active Substance: TOPIRAMATE
     Indication: SEIZURE
     Dosage: 1 TWICE DAILY TAKEN BY MOUTH
     Route: 048
     Dates: start: 20141008, end: 20141108

REACTIONS (11)
  - Weight decreased [None]
  - Cough [None]
  - Pertussis [None]
  - Dyspnoea [None]
  - Vein disorder [None]
  - Dizziness [None]
  - Decreased appetite [None]
  - Impaired work ability [None]
  - Fatigue [None]
  - Upper respiratory tract infection [None]
  - Nausea [None]

NARRATIVE: CASE EVENT DATE: 20141107
